FAERS Safety Report 7768097-9 (Version None)
Quarter: 2011Q3

REPORT INFORMATION
  Report Type: 
  Country: None (occurrence: None)
  Receive Date: 20110922
  Receipt Date: 20110912
  Transmission Date: 20111222
  Serious: Yes (Disabling, Other)
  Sender: FDA-Public Use
  Company Number: US-UCBSA-040192

PATIENT
  Sex: Male
  Weight: 56.69 kg

DRUGS (7)
  1. NEXIUM [Concomitant]
  2. PERCOCET [Concomitant]
  3. CERTOLIZUMAB PEGOL [Suspect]
     Indication: CROHN'S DISEASE
     Route: 058
     Dates: start: 20090826
  4. CALCIUM CARBONATE [Concomitant]
  5. VITAMIN B COMPLEX CAP [Concomitant]
  6. MULTI-VITAMIN [Concomitant]
  7. FENTANYL TDS [Concomitant]
     Dosage: MCG PATCHES, TWO PATCH EVERY 3 DAYS

REACTIONS (1)
  - LYMPHOMA [None]
